FAERS Safety Report 9893250 (Version 1)
Quarter: 2014Q1

REPORT INFORMATION
  Report Type: Spontaneous
  Country: US (occurrence: US)
  Receive Date: 20140213
  Receipt Date: 20140213
  Transmission Date: 20141002
  Serious: No
  Sender: FDA-Public Use
  Company Number: US-009507513-1402USA005397

PATIENT
  Age: 21 Year
  Sex: Female
  Weight: 81.63 kg

DRUGS (1)
  1. NEXPLANON [Suspect]
     Indication: CONTRACEPTION
     Dosage: DOSE/FREQUENCY: 1 ROD UP TO 3 YEARS, ON LEFT ARM
     Route: 059
     Dates: start: 20130909

REACTIONS (2)
  - Implant site pruritus [Unknown]
  - Implant site mass [Unknown]
